FAERS Safety Report 9918245 (Version 2)
Quarter: 2014Q1

REPORT INFORMATION
  Report Type: Spontaneous
  Country: VN (occurrence: VN)
  Receive Date: 20140224
  Receipt Date: 20140224
  Transmission Date: 20141002
  Serious: Yes (Other)
  Sender: FDA-Public Use
  Company Number: VN-ROCHE-1350817

PATIENT
  Age: 23 Year
  Sex: Female

DRUGS (2)
  1. MIRCERA [Suspect]
     Indication: ANAEMIA
     Dosage: 100 MCG AT SINGLE DOSE
     Route: 065
  2. MIRCERA [Suspect]
     Dosage: 50MCG AT SINGLE DOSE
     Route: 065

REACTIONS (2)
  - Exposure during pregnancy [Unknown]
  - Abortion spontaneous [Unknown]
